FAERS Safety Report 15963815 (Version 1)
Quarter: 2019Q1

REPORT INFORMATION
  Report Type: Report from Study
  Country: FR (occurrence: FR)
  Receive Date: 20190214
  Receipt Date: 20190214
  Transmission Date: 20190417
  Serious: Yes (Hospitalization, Other)
  Sender: FDA-Public Use
  Company Number: FR-MYLANLABS-2019M1012743

PATIENT
  Age: 57 Year
  Sex: Female

DRUGS (1)
  1. ABACAVIR SULFATE/LAMIVUDINE [Suspect]
     Active Substance: ABACAVIR SULFATE\LAMIVUDINE
     Indication: HIV INFECTION
     Dosage: UNK
     Route: 065

REACTIONS (14)
  - Urinary tract infection [Unknown]
  - Fatigue [Unknown]
  - Abdominal pain [Unknown]
  - Asthenia [Unknown]
  - Endometrial disorder [Unknown]
  - Cardiac disorder [Unknown]
  - Musculoskeletal disorder [Unknown]
  - Blood pressure abnormal [Unknown]
  - Thyroid disorder [Unknown]
  - Blood cholesterol abnormal [Unknown]
  - Pain in extremity [Unknown]
  - Breast cancer [Unknown]
  - Renal pain [Unknown]
  - Ureteritis [Unknown]

NARRATIVE: CASE EVENT DATE: 201710
